FAERS Safety Report 9867423 (Version 1)
Quarter: 2014Q1

REPORT INFORMATION
  Report Type: Spontaneous
  Country: US (occurrence: None)
  Receive Date: 20140131
  Receipt Date: 20140131
  Transmission Date: 20141002
  Serious: Yes (Death)
  Sender: FDA-Public Use
  Company Number: 2014P1000648

PATIENT
  Sex: 0

DRUGS (1)
  1. CLONIDINE [Suspect]

REACTIONS (1)
  - Accidental exposure to product [None]
